FAERS Safety Report 23806449 (Version 5)
Quarter: 2025Q4

REPORT INFORMATION
  Report Type: Report from Study
  Country: US (occurrence: US)
  Receive Date: 20240502
  Receipt Date: 20251230
  Transmission Date: 20260118
  Serious: Yes (Other)
  Sender: ABBVIE
  Company Number: US-ABBVIE-5697359

PATIENT
  Age: 73 Year
  Sex: Female

DRUGS (2)
  1. SKYRIZI [Suspect]
     Active Substance: RISANKIZUMAB-RZAA
     Indication: Crohn^s disease
     Dosage: FORM STRENGTH: 360 MILLIGRAM PER 2.4 MILLILITRE(S)
     Route: 058
  2. SKYRIZI [Suspect]
     Active Substance: RISANKIZUMAB-RZAA
     Dosage: FORM STRENGTH: 360 MILLIGRAM PER 2.4 MILLILITRE(S)
     Route: 058
     Dates: start: 20231009

REACTIONS (10)
  - Patella fracture [Recovering/Resolving]
  - Joint stiffness [Not Recovered/Not Resolved]
  - Diarrhoea [Not Recovered/Not Resolved]
  - Fall [Unknown]
  - Abdominal pain lower [Not Recovered/Not Resolved]
  - Arthralgia [Unknown]
  - Pain in extremity [Unknown]
  - Suture related complication [Recovering/Resolving]
  - Flatulence [Not Recovered/Not Resolved]
  - Medical device removal [Recovering/Resolving]

NARRATIVE: CASE EVENT DATE: 20240101
